FAERS Safety Report 8384878-5 (Version None)
Quarter: 2012Q2

REPORT INFORMATION
  Report Type: 
  Country: None (occurrence: None)
  Receive Date: 20120524
  Receipt Date: 20120516
  Transmission Date: 20120825
  Serious: Yes (Other)
  Sender: FDA-Public Use
  Company Number: JP-VERTEX PHARMACEUTICALS INC.-AE-2012-007593

PATIENT
  Age: 61 Year
  Sex: Female

DRUGS (11)
  1. TELAVIC (TELAPREVIR) [Suspect]
     Route: 048
     Dates: start: 20120330, end: 20120410
  2. LIVACT [Concomitant]
     Route: 048
  3. PEGINTERFERON AFA -2B [Concomitant]
     Indication: HEPATITIS C
     Route: 051
     Dates: start: 20120319, end: 20120325
  4. PEGINTERFERON AFA -2B [Concomitant]
     Route: 051
     Dates: start: 20120326, end: 20120409
  5. TRICHLORMETHIAZIDE [Concomitant]
     Route: 048
  6. BROTIZOLAN [Concomitant]
     Route: 048
  7. LANSOPRAZOLE [Concomitant]
     Route: 048
  8. RIBAVIRIN [Concomitant]
     Route: 048
     Dates: start: 20120319, end: 20120410
  9. TELAVIC (TELAPREVIR) [Suspect]
     Indication: HEPATITIS C
     Route: 048
     Dates: start: 20120319, end: 20120329
  10. URSO 250 [Concomitant]
     Route: 048
  11. NORVASC [Concomitant]
     Route: 048

REACTIONS (1)
  - ASCITES [None]
